FAERS Safety Report 10280858 (Version 1)
Quarter: 2014Q3

REPORT INFORMATION
  Report Type: Spontaneous
  Country: US (occurrence: US)
  Receive Date: 20140707
  Receipt Date: 20140707
  Transmission Date: 20150326
  Serious: Yes (Other)
  Sender: FDA-Public Use
  Company Number: US-AMGEN-USASP2014042793

PATIENT
  Age: 63 Year
  Sex: Male

DRUGS (2)
  1. ENBREL [Suspect]
     Active Substance: ETANERCEPT
     Indication: PSORIATIC ARTHROPATHY
  2. ENBREL [Suspect]
     Active Substance: ETANERCEPT
     Indication: PSORIASIS
     Dosage: 50 MG,EVERY TWO TO THREE WEEKS
     Route: 065
     Dates: start: 2005, end: 201402

REACTIONS (8)
  - Productive cough [Recovered/Resolved]
  - Nasopharyngitis [Unknown]
  - Upper respiratory tract infection [Unknown]
  - Chills [Recovered/Resolved]
  - Upper-airway cough syndrome [Recovered/Resolved]
  - Psoriasis [Not Recovered/Not Resolved]
  - Lower respiratory tract infection [Recovered/Resolved]
  - Myalgia [Recovered/Resolved]

NARRATIVE: CASE EVENT DATE: 201402
